FAERS Safety Report 9123065 (Version 1)
Quarter: 2013Q1

REPORT INFORMATION
  Report Type: Spontaneous
  Country: US (occurrence: US)
  Receive Date: 20130227
  Receipt Date: 20130227
  Transmission Date: 20140127
  Serious: Yes (Hospitalization)
  Sender: FDA-Public Use
  Company Number: US-ELI_LILLY_AND_COMPANY-US201108002127

PATIENT
  Age: 82 None
  Sex: Female

DRUGS (13)
  1. FORTEO [Suspect]
     Indication: OSTEOPOROSIS
     Dosage: 20 UG, QD
     Route: 065
     Dates: start: 201106
  2. FORTEO [Suspect]
     Dosage: 20 UG, QD
     Route: 065
  3. FORTEO [Suspect]
     Dosage: 20 UG, QD
     Route: 065
  4. FORTEO [Suspect]
     Dosage: 20 UG, QD
     Route: 065
  5. FORTEO [Suspect]
     Dosage: 20 UG, QD
  6. FORTEO [Suspect]
     Dosage: 20 UG, QD
  7. FORTEO [Suspect]
     Dosage: 20 UG, QD
  8. PRADAXA [Concomitant]
     Dosage: UNK
  9. AMIODARONE [Concomitant]
     Dosage: UNK
  10. METOPROLOL [Concomitant]
     Dosage: UNK
  11. RANIDINE [Concomitant]
     Dosage: UNK
  12. VITAMINS [Concomitant]
     Dosage: UNK
  13. CALCIUM [Concomitant]
     Dosage: UNK

REACTIONS (13)
  - Palpitations [Unknown]
  - Feeling abnormal [Unknown]
  - Atrial fibrillation [Unknown]
  - Pain in jaw [Unknown]
  - Blood pressure increased [Unknown]
  - Rotator cuff syndrome [Unknown]
  - Musculoskeletal disorder [Unknown]
  - Fall [Unknown]
  - Fatigue [Unknown]
  - Hypersomnia [Not Recovered/Not Resolved]
  - Asthenia [Not Recovered/Not Resolved]
  - Pain in extremity [Unknown]
  - Fatigue [Unknown]
